FAERS Safety Report 6025167-3 (Version None)
Quarter: 2008Q4

REPORT INFORMATION
  Report Type: 
  Country: None (occurrence: None)
  Receive Date: 20081231
  Receipt Date: 20081219
  Transmission Date: 20090506
  Serious: Yes (Life-Threatening, Hospitalization)
  Sender: FDA-Public Use
  Company Number: JP-ASTRAZENECA-2008SE05470

PATIENT
  Sex: Male
  Weight: 56 kg

DRUGS (6)
  1. BLOPRESS TABLETS 8 [Suspect]
     Indication: HYPERTENSION
     Route: 048
     Dates: start: 20040126, end: 20070506
  2. BLOPRESS TABLETS 8 [Suspect]
     Route: 048
     Dates: start: 20070507
  3. TOMIRON [Concomitant]
     Indication: NASOPHARYNGITIS
     Route: 048
     Dates: start: 20081004, end: 20081011
  4. SULPYRINE [Concomitant]
     Indication: NASOPHARYNGITIS
     Route: 048
     Dates: start: 20081004, end: 20081011
  5. NICHICODE(ANTITUSSIVES COMBINED DRUG 1) [Concomitant]
     Indication: NASOPHARYNGITIS
     Route: 048
     Dates: start: 20081004, end: 20081011
  6. PROSEXOL [Concomitant]
     Indication: PROSTATE CANCER STAGE III
     Route: 048
     Dates: start: 20080801, end: 20081101

REACTIONS (2)
  - ACUTE RESPIRATORY FAILURE [None]
  - CARDIAC FAILURE ACUTE [None]
